FAERS Safety Report 4596389-3 (Version None)
Quarter: 2005Q1

REPORT INFORMATION
  Report Type: 
  Country: None (occurrence: None)
  Receive Date: 20050228
  Receipt Date: 20050214
  Transmission Date: 20050727
  Serious: Yes (Hospitalization)
  Sender: FDA-Public Use
  Company Number: 2005031095

PATIENT
  Age: 18 Month

DRUGS (2)
  1. PREDNISONE [Suspect]
     Indication: ILL-DEFINED DISORDER
     Dosage: 3 MG (D), UNKNOWN
  2. TACROLIMUS [Concomitant]

REACTIONS (10)
  - ABDOMINAL DISTENSION [None]
  - ANASTOMOTIC STENOSIS [None]
  - COMPLICATIONS OF TRANSPLANTED LIVER [None]
  - DYSPNOEA [None]
  - HEPATIC VEIN STENOSIS [None]
  - LARYNGEAL DISORDER [None]
  - LYMPHOPROLIFERATIVE DISORDER [None]
  - OBSTRUCTIVE AIRWAYS DISORDER [None]
  - SEROCONVERSION TEST POSITIVE [None]
  - URINE OUTPUT DECREASED [None]
